FAERS Safety Report 5825003-1 (Version None)
Quarter: 2008Q3

REPORT INFORMATION
  Report Type: 
  Country: None (occurrence: None)
  Receive Date: 20080728
  Receipt Date: 20080718
  Transmission Date: 20090109
  Serious: Yes (Other)
  Sender: FDA-Public Use
  Company Number: US-PFIZER INC-2008060586

PATIENT
  Sex: Male

DRUGS (2)
  1. XALATAN [Suspect]
     Indication: GLAUCOMA
  2. TIMOPTIC [Suspect]

REACTIONS (2)
  - CARDIAC FAILURE CONGESTIVE [None]
  - EYE INJURY [None]
